FAERS Safety Report 4573656-0 (Version None)
Quarter: 2005Q1

REPORT INFORMATION
  Report Type: 
  Country: None (occurrence: None)
  Receive Date: 20050203
  Receipt Date: 20050126
  Transmission Date: 20050727
  Serious: Yes (Hospitalization)
  Sender: FDA-Public Use
  Company Number: VIS10184.2005

PATIENT
  Age: 63 Year
  Sex: Female

DRUGS (2)
  1. VISICOL [Suspect]
     Indication: COLONOSCOPY
     Dosage: 30 G ONCE PO
     Route: 048
  2. HYDROCHLOROTHIAZIDE [Suspect]
     Indication: HYPERTENSION

REACTIONS (9)
  - BLOOD PHOSPHORUS DECREASED [None]
  - DEHYDRATION [None]
  - DIZZINESS [None]
  - HYPOKALAEMIA [None]
  - HYPONATRAEMIA [None]
  - INFREQUENT BOWEL MOVEMENTS [None]
  - NAUSEA [None]
  - URINE OUTPUT DECREASED [None]
  - VOMITING [None]
